FAERS Safety Report 10183217 (Version 1)
Quarter: 2014Q2

REPORT INFORMATION
  Report Type: Spontaneous
  Country: HU (occurrence: HU)
  Receive Date: 20140520
  Receipt Date: 20140520
  Transmission Date: 20141212
  Serious: Yes (Life-Threatening, Hospitalization)
  Sender: FDA-Public Use
  Company Number: HU-BAYER-2014-068514

PATIENT
  Age: 59 Year
  Sex: Male

DRUGS (12)
  1. CIPROFLOXACIN [Suspect]
     Indication: PYREXIA
  2. CIPROFLOXACIN [Suspect]
     Indication: RESPIRATORY DISORDER
  3. CIPROFLOXACIN [Suspect]
     Indication: DYSURIA
  4. SULFAMETHOXAZOLE/TRIMETHOPRIM [Suspect]
     Indication: PYREXIA
  5. SULFAMETHOXAZOLE/TRIMETHOPRIM [Suspect]
     Indication: RESPIRATORY DISORDER
  6. SULFAMETHOXAZOLE/TRIMETHOPRIM [Suspect]
     Indication: DYSURIA
  7. CEFIXIME [Suspect]
     Indication: PYREXIA
  8. CEFIXIME [Suspect]
     Indication: RESPIRATORY DISORDER
  9. CEFIXIME [Suspect]
     Indication: DYSURIA
  10. NORFLOXACIN [Suspect]
     Indication: PYREXIA
  11. NORFLOXACIN [Suspect]
     Indication: RESPIRATORY DISORDER
  12. NORFLOXACIN [Suspect]
     Indication: DYSURIA

REACTIONS (9)
  - Pseudomembranous colitis [Recovered/Resolved]
  - Autoimmune disorder [None]
  - Megacolon [None]
  - Acute prerenal failure [None]
  - Sepsis [None]
  - Drug eruption [None]
  - Systemic inflammatory response syndrome [None]
  - Hypoalbuminaemia [None]
  - Generalised oedema [None]
